FAERS Safety Report 10465377 (Version 4)
Quarter: 2014Q4

REPORT INFORMATION
  Report Type: Spontaneous
  Country: JP (occurrence: JP)
  Receive Date: 20140919
  Receipt Date: 20141209
  Transmission Date: 20150528
  Serious: Yes (Hospitalization)
  Sender: FDA-Public Use
  Company Number: JP-MALLINCKRODT-T201403500

PATIENT
  Age: 71 Year
  Sex: Male
  Weight: 58 kg

DRUGS (52)
  1. CEFMETAZOLE [Concomitant]
     Active Substance: CEFMETAZOLE
     Dosage: 2 G, UNK
     Route: 042
     Dates: start: 20140802, end: 20140805
  2. ALBUMIN HUMAN [Concomitant]
     Active Substance: ALBUMIN (HUMAN)
     Dosage: 250 ML, UNK
     Route: 042
     Dates: start: 20140618, end: 20140620
  3. RED CELLS CONCENTRATES-LEUKOCYTES REDUCED [Concomitant]
     Dosage: 2 IU
     Route: 042
     Dates: start: 20140826, end: 20140828
  4. FRESH FROZEN PLASMA [Concomitant]
     Active Substance: HUMAN PLASMA
     Dosage: 32 IU
     Route: 042
     Dates: start: 20140901, end: 20140901
  5. AMLODIPINE [Concomitant]
     Active Substance: AMLODIPINE BESYLATE
     Dosage: 5 MG
     Route: 048
     Dates: start: 20140524, end: 20140812
  6. OFIRMEV [Suspect]
     Active Substance: ACETAMINOPHEN
     Dosage: 1000 MG (1/1 DAY)
     Route: 042
     Dates: start: 20140623, end: 20140623
  7. PIPERACILLIN AND TAZOBACTAM [Concomitant]
     Active Substance: PIPERACILLIN SODIUM\TAZOBACTAM SODIUM
     Dosage: 18 G, UNK
     Route: 042
     Dates: start: 20140707, end: 20140709
  8. CEFMETAZOLE [Concomitant]
     Active Substance: CEFMETAZOLE
     Dosage: 4 G, UNK
     Route: 042
     Dates: start: 20140821, end: 20140826
  9. RED CELLS CONCENTRATES-LEUKOCYTES REDUCED [Concomitant]
     Dosage: 2 IU
     Route: 042
     Dates: start: 20140907, end: 20140907
  10. FRESH FROZEN PLASMA [Concomitant]
     Active Substance: HUMAN PLASMA
     Dosage: 10 IU
     Route: 042
     Dates: start: 20140825, end: 20140825
  11. CEFAZOLIN SODIUM. [Concomitant]
     Active Substance: CEFAZOLIN SODIUM
     Dosage: 1 G, UNK
     Route: 042
     Dates: start: 20140604, end: 20140604
  12. CALONAL [Concomitant]
     Active Substance: ACETAMINOPHEN
     Dosage: 400 MG
     Route: 065
     Dates: start: 20140623
  13. GASMOTIN [Concomitant]
     Active Substance: MOSAPRIDE CITRATE
     Dosage: 15 MG
     Route: 065
     Dates: start: 20140729, end: 20140808
  14. REBAMIPIDE [Concomitant]
     Active Substance: REBAMIPIDE
     Dosage: UNK
     Route: 065
     Dates: start: 20140806, end: 20140808
  15. ESLAX [Concomitant]
     Active Substance: ROCURONIUM BROMIDE
     Dosage: UNK
     Route: 042
     Dates: start: 20140618, end: 20140618
  16. CLEXANE [Concomitant]
     Active Substance: ENOXAPARIN SODIUM
     Dosage: 2000 IU
     Route: 065
     Dates: start: 20140618, end: 20140704
  17. URSODEOXYCHOLIC ACID [Concomitant]
     Active Substance: URSODIOL
     Dosage: 150 MG
     Route: 065
     Dates: start: 20140719, end: 20140819
  18. VENILON [Concomitant]
     Active Substance: HUMAN IMMUNOGLOBULIN G
     Dosage: 5 G
     Route: 065
     Dates: start: 20140708
  19. PROPOFOL. [Concomitant]
     Active Substance: PROPOFOL
     Dosage: UNK
     Route: 042
     Dates: start: 20140618, end: 20140618
  20. ELNEOPA NO.1 [Concomitant]
     Dosage: 1500 ML
     Route: 041
     Dates: start: 20140630, end: 20140701
  21. OFIRMEV [Suspect]
     Active Substance: ACETAMINOPHEN
     Dosage: 1000 MG (1/1 DAY)
     Route: 042
     Dates: start: 20140616, end: 20140616
  22. RED CELLS CONCENTRATES-LEUKOCYTES REDUCED [Concomitant]
     Dosage: 4 IU
     Route: 042
     Dates: start: 20140825, end: 20140825
  23. RED CELLS CONCENTRATES-LEUKOCYTES REDUCED [Concomitant]
     Dosage: 4 IU
     Route: 042
     Dates: start: 20140905, end: 20140905
  24. GANCICLOVIR. [Concomitant]
     Active Substance: GANCICLOVIR
     Dosage: 500 MG
     Route: 065
     Dates: start: 20140904
  25. MIYA-BM [Concomitant]
     Active Substance: CLOSTRIDIUM BUTYRICUM SPORES STRAIN M-55
     Dosage: UNK
     Route: 065
     Dates: start: 20140706, end: 20140730
  26. INTRALIPID [Concomitant]
     Active Substance: EGG PHOSPHOLIPIDS\GLYCERIN\SOYBEAN OIL
     Dosage: UNK
     Route: 065
     Dates: start: 20140707, end: 20140722
  27. FENTANYL CITRATE. [Concomitant]
     Active Substance: FENTANYL CITRATE
     Dosage: UNK
     Route: 042
     Dates: start: 20140618, end: 20140618
  28. MEROPENEM. [Concomitant]
     Active Substance: MEROPENEM
     Dosage: 3 G, UNK
     Route: 042
     Dates: start: 20140827, end: 20140909
  29. ALBUMIN HUMAN [Concomitant]
     Active Substance: ALBUMIN (HUMAN)
     Dosage: 250 ML, UNK
     Route: 042
     Dates: start: 20140708, end: 20140709
  30. RED CELLS CONCENTRATES-LEUKOCYTES REDUCED [Concomitant]
     Dosage: 4 IU
     Route: 042
     Dates: start: 20140830, end: 20140830
  31. RED CELLS CONCENTRATES-LEUKOCYTES REDUCED [Concomitant]
     Dosage: 2 IU
     Route: 042
     Dates: start: 20140831, end: 20140831
  32. ASPARA POTASSIUM [Concomitant]
     Active Substance: POTASSIUM ASPARTATE
     Dosage: UNK
     Route: 065
     Dates: start: 20140804, end: 20140811
  33. SEVOFLURANE. [Concomitant]
     Active Substance: SEVOFLURANE
     Dosage: UNK
     Route: 055
     Dates: start: 20140618, end: 20140618
  34. OFIRMEV [Suspect]
     Active Substance: ACETAMINOPHEN
     Dosage: 1000 MG (1/1 DAY)
     Route: 042
     Dates: start: 20140614, end: 20140614
  35. OFIRMEV [Suspect]
     Active Substance: ACETAMINOPHEN
     Dosage: 1000 MG (2/1 DAY)
     Route: 042
     Dates: start: 20140617, end: 20140618
  36. OFIRMEV [Suspect]
     Active Substance: ACETAMINOPHEN
     Dosage: 1000 MG (4/1 DAY)
     Route: 042
     Dates: start: 20140624, end: 20140625
  37. RED CELLS CONCENTRATES-LEUKOCYTES REDUCED [Concomitant]
     Dosage: 2 IU
     Route: 042
     Dates: start: 20140902, end: 20140903
  38. HEMOCURON [Concomitant]
     Active Substance: TRIBENOSIDE
     Dosage: 200 MG
     Route: 065
     Dates: start: 20140814, end: 20140816
  39. FIBROGAMMIN P [Concomitant]
     Active Substance: FACTOR XIII CONCENTRATE (HUMAN)
     Dosage: 6 DF
     Route: 065
     Dates: start: 20140717, end: 20140721
  40. ELNEOPA NO.1 [Concomitant]
     Dosage: 1000 ML
     Route: 041
     Dates: start: 20140624, end: 20140625
  41. OFIRMEV [Suspect]
     Active Substance: ACETAMINOPHEN
     Dosage: 1000 MG (2/1 DAY)
     Route: 042
     Dates: start: 20140622, end: 20140622
  42. PIPERACILLIN AND TAZOBACTAM [Concomitant]
     Active Substance: PIPERACILLIN SODIUM\TAZOBACTAM SODIUM
     Dosage: 18 G, UNK
     Route: 042
     Dates: start: 20140613, end: 20140626
  43. BIOFERMIN [Concomitant]
     Active Substance: BACILLUS SUBTILIS\LACTOBACILLUS ACIDOPHILUS\STREPTOCOCCUS FAECAIS
     Dosage: UNK
     Route: 065
     Dates: start: 20140702, end: 20140804
  44. DENOSINE [Concomitant]
     Active Substance: GANCICLOVIR
     Dosage: UNK
     Dates: start: 20140904
  45. ULTIVA [Concomitant]
     Active Substance: REMIFENTANIL HYDROCHLORIDE
     Dosage: UNK
     Route: 042
     Dates: start: 20140618, end: 20140618
  46. OFIRMEV [Suspect]
     Active Substance: ACETAMINOPHEN
     Indication: PAIN MANAGEMENT
     Dosage: 1000 MG (2/1 DAY)
     Route: 042
     Dates: start: 20140626, end: 20140626
  47. CEFEPIME HYDROCHLORIDE. [Concomitant]
     Active Substance: CEFEPIME HYDROCHLORIDE
     Dosage: 6 G, UNK
     Route: 042
     Dates: start: 20140709, end: 20140716
  48. METRONIDAZOLE. [Concomitant]
     Active Substance: METRONIDAZOLE
     Dosage: 1500 MG, UNK
     Route: 042
     Dates: start: 20140708, end: 20140720
  49. FRESH FROZEN PLASMA [Concomitant]
     Active Substance: HUMAN PLASMA
     Dosage: 32 IU
     Route: 042
     Dates: start: 20140827, end: 20140829
  50. BIOFERMIN R [Concomitant]
     Active Substance: BACILLUS SUBTILIS\LACTOBACILLUS ACIDOPHILUS\STREPTOCOCCUS FAECAIS
     Dosage: UNK
     Route: 065
     Dates: start: 20140625, end: 20140701
  51. MAGLAX [Concomitant]
     Active Substance: MAGNESIUM OXIDE
     Dosage: 330 MG
     Route: 065
     Dates: start: 20140802, end: 20140816
  52. LOXOPROFEN [Concomitant]
     Active Substance: LOXOPROFEN
     Dosage: UNK
     Route: 065
     Dates: start: 20140806, end: 20140808

REACTIONS (3)
  - Aplasia pure red cell [Not Recovered/Not Resolved]
  - Hyperbilirubinaemia [Not Recovered/Not Resolved]
  - Liver disorder [Not Recovered/Not Resolved]

NARRATIVE: CASE EVENT DATE: 20140626
